FAERS Safety Report 12863329 (Version 1)
Quarter: 2016Q4

REPORT INFORMATION
  Report Type: Spontaneous
  Country: US (occurrence: US)
  Receive Date: 20161019
  Receipt Date: 20161019
  Transmission Date: 20170207
  Serious: No
  Sender: FDA-Public Use
  Company Number: US-OTSUKA-2016_018156

PATIENT
  Sex: Female

DRUGS (6)
  1. REXULTI [Suspect]
     Active Substance: BREXPIPRAZOLE
     Indication: ADJUVANT THERAPY
     Dosage: 0.5 MG, DAILY
     Route: 048
     Dates: start: 201606, end: 2016
  2. REXULTI [Suspect]
     Active Substance: BREXPIPRAZOLE
     Dosage: SPLITTING 3 MG TABLET (1.5 MG)
     Route: 065
     Dates: start: 2016, end: 2016
  3. REXULTI [Suspect]
     Active Substance: BREXPIPRAZOLE
     Dosage: UNK
     Route: 065
     Dates: start: 2016
  4. REXULTI [Suspect]
     Active Substance: BREXPIPRAZOLE
     Dosage: 1 MG, UNK
     Route: 065
     Dates: start: 2016, end: 2016
  5. NUVIGIL [Concomitant]
     Active Substance: ARMODAFINIL
     Indication: PRODUCT USED FOR UNKNOWN INDICATION
     Dosage: UNK
     Route: 065
  6. REXULTI [Suspect]
     Active Substance: BREXPIPRAZOLE
     Indication: MAJOR DEPRESSION
     Dosage: 2 MG, UNK
     Route: 065
     Dates: start: 2016, end: 2016

REACTIONS (5)
  - Dyspnoea [Unknown]
  - Weight increased [Unknown]
  - Drug dose omission [Unknown]
  - Inability to afford medication [Unknown]
  - Wrong technique in product usage process [Unknown]

NARRATIVE: CASE EVENT DATE: 2016
